FAERS Safety Report 8418393-7 (Version None)
Quarter: 2012Q2

REPORT INFORMATION
  Report Type: 
  Country: None (occurrence: None)
  Receive Date: 20120607
  Receipt Date: 20120605
  Transmission Date: 20120825
  Serious: Yes (Other)
  Sender: FDA-Public Use
  Company Number: US-PFIZER INC-2012135439

PATIENT
  Sex: Female
  Weight: 68.027 kg

DRUGS (5)
  1. TOVIAZ [Suspect]
     Indication: HYPERTONIC BLADDER
     Dosage: 4 MG, DAILY
     Route: 048
     Dates: start: 20120501, end: 20120101
  2. PREMARIN [Concomitant]
     Indication: HYSTERECTOMY
     Dosage: UNK, DAILY
  3. TOVIAZ [Suspect]
     Dosage: 8 MG, DAILY
     Route: 048
     Dates: start: 20120101, end: 20120101
  4. TOVIAZ [Suspect]
     Dosage: UNK
     Route: 048
     Dates: start: 20120101
  5. LEXAPRO [Concomitant]
     Indication: DEPRESSION
     Dosage: 20 MG, DAILY

REACTIONS (4)
  - HAEMORRHAGE [None]
  - CONSTIPATION [None]
  - NAUSEA [None]
  - MALAISE [None]
